FAERS Safety Report 12504481 (Version 3)
Quarter: 2016Q4

REPORT INFORMATION
  Report Type: Report from Study
  Country: JP (occurrence: JP)
  Receive Date: 20160628
  Receipt Date: 20161012
  Transmission Date: 20170207
  Serious: Yes (Death, Hospitalization, Other)
  Sender: FDA-Public Use
  Company Number: PHJP2016JP017879

PATIENT
  Age: 64 Year
  Sex: Male

DRUGS (1)
  1. ZYKADIA [Suspect]
     Active Substance: CERITINIB
     Indication: NON-SMALL CELL LUNG CANCER
     Dosage: 750 MG, QD
     Route: 048
     Dates: start: 20160531, end: 201606

REACTIONS (4)
  - Interstitial lung disease [Recovering/Resolving]
  - Non-small cell lung cancer [Fatal]
  - Pulmonary oedema [Recovering/Resolving]
  - Malignant neoplasm progression [Fatal]

NARRATIVE: CASE EVENT DATE: 201606
